FAERS Safety Report 7103914-7 (Version None)
Quarter: 2010Q4

REPORT INFORMATION
  Report Type: 
  Country: None (occurrence: None)
  Receive Date: 20101115
  Receipt Date: 20100518
  Transmission Date: 20110411
  Serious: Yes (Other)
  Sender: FDA-Public Use
  Company Number: US-ALLERGAN-1001710US

PATIENT
  Age: 58 Year
  Sex: Female

DRUGS (4)
  1. BOTOX COSMETIC [Suspect]
     Indication: SKIN WRINKLING
     Dosage: 24 UNITS, SINGLE
     Route: 030
     Dates: start: 20091031, end: 20091031
  2. TRAZODONE [Concomitant]
     Indication: INSOMNIA
     Dosage: 25 MG, QHS
  3. NORETHINDRONE [Concomitant]
     Indication: HORMONE REPLACEMENT THERAPY
  4. ESTRADIOL [Concomitant]
     Indication: HORMONE REPLACEMENT THERAPY

REACTIONS (3)
  - MUSCULAR WEAKNESS [None]
  - SPEECH DISORDER [None]
  - VISION BLURRED [None]
